FAERS Safety Report 5752510-2 (Version None)
Quarter: 2008Q2

REPORT INFORMATION
  Report Type: 
  Country: None (occurrence: None)
  Receive Date: 20080529
  Receipt Date: 20080520
  Transmission Date: 20081010
  Serious: No
  Sender: FDA-Public Use
  Company Number: DE-ALLERGAN-0805448US

PATIENT
  Sex: Female

DRUGS (3)
  1. LUMIGAN [Suspect]
     Indication: GLAUCOMA
     Dosage: UNK, UNK
     Route: 047
  2. PENTAERYTHRITOL TETRANITRATE [Concomitant]
     Indication: HYPERTENSION
     Route: 048
  3. BISOPROLOL [Concomitant]
     Indication: HYPERTENSION
     Route: 048

REACTIONS (1)
  - BLOOD PRESSURE INCREASED [None]
